FAERS Safety Report 21395151 (Version 1)
Quarter: 2022Q3

REPORT INFORMATION
  Report Type: Spontaneous
  Country: US (occurrence: US)
  Receive Date: 20220930
  Receipt Date: 20220930
  Transmission Date: 20221027
  Serious: No
  Sender: FDA-Public Use
  Company Number: US-GLAXOSMITHKLINE-US2022AMR136272

PATIENT
  Sex: Female
  Weight: 69.388 kg

DRUGS (1)
  1. ZEJULA [Suspect]
     Active Substance: NIRAPARIB
     Indication: Ovarian cancer
     Dosage: 200 MG, QD
     Route: 048
     Dates: start: 20220906, end: 20220918

REACTIONS (5)
  - Hypersensitivity [Unknown]
  - Rash [Unknown]
  - Dyspepsia [Recovered/Resolved]
  - Illness [Unknown]
  - Decreased activity [Unknown]
